FAERS Safety Report 8034304 (Version 4)
Quarter: 2014Q3

REPORT INFORMATION
  Report Type: Spontaneous
  Country: DE (occurrence: DE)
  Receive Date: 20110714
  Receipt Date: 20140729
  Transmission Date: 20150326
  Serious: Yes (Hospitalization, Other)
  Sender: FDA-Public Use
  Company Number: DE-RANBAXY-2011RR-45998

PATIENT
  Age: 49 Year
  Sex: Female
  Weight: 81 kg

DRUGS (4)
  1. IBUPROFEN. [Suspect]
     Active Substance: IBUPROFEN
     Dosage: UNK
     Route: 048
     Dates: start: 20110314, end: 20110318
  2. IBUPROFEN. [Suspect]
     Active Substance: IBUPROFEN
     Indication: PRODUCT USED FOR UNKNOWN INDICATION
     Dosage: 400 MG, QD
     Route: 048
     Dates: start: 20110104, end: 20110318
  3. SALOFALK GRANUSTIX, 1000 MG [Suspect]
     Active Substance: MESALAMINE
     Dosage: 2000 MG, QD
     Route: 048
     Dates: start: 20110323, end: 20110323
  4. SALOFALK GRANUSTIX, 1000 MG [Suspect]
     Active Substance: MESALAMINE
     Indication: PRODUCT USED FOR UNKNOWN INDICATION
     Dosage: 2000 MG, BID
     Route: 048
     Dates: start: 20110302, end: 20110322

REACTIONS (3)
  - Colitis ulcerative [None]
  - Pancreatitis acute [Recovered/Resolved]
  - Helicobacter gastritis [None]

NARRATIVE: CASE EVENT DATE: 20110313
